FAERS Safety Report 16855167 (Version 3)
Quarter: 2020Q3

REPORT INFORMATION
  Report Type: Spontaneous
  Country: US (occurrence: US)
  Receive Date: 20190926
  Receipt Date: 20200825
  Transmission Date: 20201102
  Serious: Yes (Hospitalization, Other)
  Sender: FDA-Public Use
  Company Number: US-GILEAD-2019-0429566

PATIENT
  Age: 56 Year
  Sex: Male
  Weight: 78.91 kg

DRUGS (31)
  1. METFORMIN [Concomitant]
     Active Substance: METFORMIN HYDROCHLORIDE
  2. KALETRA [Concomitant]
     Active Substance: LOPINAVIR\RITONAVIR
  3. DIPHENOXYLATE/ATROPINE [Concomitant]
     Active Substance: ATROPINE\DIPHENOXYLATE
  4. AZITHROMYCIN ANHYDROUS. [Concomitant]
     Active Substance: AZITHROMYCIN ANHYDROUS
  5. GABAPENTIN. [Concomitant]
     Active Substance: GABAPENTIN
  6. PREDNISONE. [Concomitant]
     Active Substance: PREDNISONE
  7. TRUVADA [Suspect]
     Active Substance: EMTRICITABINE\TENOFOVIR DISOPROXIL FUMARATE
     Indication: HIV INFECTION
     Dosage: UNK
     Route: 048
     Dates: start: 200903, end: 20141202
  8. COMBIVIR [Concomitant]
     Active Substance: LAMIVUDINE\ZIDOVUDINE
  9. TRIUMEQ [Concomitant]
     Active Substance: ABACAVIR SULFATE\DOLUTEGRAVIR SODIUM\LAMIVUDINE
  10. CALCIUM CARBONATE. [Concomitant]
     Active Substance: CALCIUM CARBONATE
  11. CYANOCOBALAMIN. [Concomitant]
     Active Substance: CYANOCOBALAMIN
  12. ERGOCALCIFEROL. [Concomitant]
     Active Substance: ERGOCALCIFEROL
  13. LOSARTAN. [Concomitant]
     Active Substance: LOSARTAN
  14. MEFLOQUINE [Concomitant]
     Active Substance: MEFLOQUINE
  15. DULAGLUTIDE. [Concomitant]
     Active Substance: DULAGLUTIDE
  16. LORAZEPAM. [Concomitant]
     Active Substance: LORAZEPAM
  17. EPIVIR [Concomitant]
     Active Substance: LAMIVUDINE
  18. CARVEDILOL. [Concomitant]
     Active Substance: CARVEDILOL
  19. CHOLECALCIFEROL [Concomitant]
     Active Substance: CHOLECALCIFEROL
  20. COREG [Concomitant]
     Active Substance: CARVEDILOL
  21. PARICALCITOL. [Concomitant]
     Active Substance: PARICALCITOL
  22. PRAVASTATIN. [Concomitant]
     Active Substance: PRAVASTATIN
  23. ISONIAZIDE [Concomitant]
     Active Substance: ISONIAZID
  24. LISINOPRIL. [Concomitant]
     Active Substance: LISINOPRIL
  25. PYRIDOXINE [Concomitant]
     Active Substance: PYRIDOXINE
  26. TRAMADOL. [Concomitant]
     Active Substance: TRAMADOL
  27. EPZICOM [Concomitant]
     Active Substance: ABACAVIR SULFATE\LAMIVUDINE
  28. ISENTRESS [Concomitant]
     Active Substance: RALTEGRAVIR POTASSIUM
  29. ZIAGEN [Concomitant]
     Active Substance: ABACAVIR SULFATE
  30. RALTEGRAVIR. [Concomitant]
     Active Substance: RALTEGRAVIR
  31. TRULICITY [Concomitant]
     Active Substance: DULAGLUTIDE

REACTIONS (13)
  - Pain [Not Recovered/Not Resolved]
  - Anhedonia [Not Recovered/Not Resolved]
  - Fear [Not Recovered/Not Resolved]
  - End stage renal disease [Unknown]
  - Chronic kidney disease [Not Recovered/Not Resolved]
  - Fatigue [Not Recovered/Not Resolved]
  - Quality of life decreased [Not Recovered/Not Resolved]
  - Emotional distress [Not Recovered/Not Resolved]
  - Economic problem [Not Recovered/Not Resolved]
  - Renal failure [Recovered/Resolved]
  - Anxiety [Not Recovered/Not Resolved]
  - Loss of personal independence in daily activities [Not Recovered/Not Resolved]
  - Decreased activity [Not Recovered/Not Resolved]

NARRATIVE: CASE EVENT DATE: 20120710
